FAERS Safety Report 13861101 (Version 1)
Quarter: 2017Q3

REPORT INFORMATION
  Report Type: Spontaneous
  Country: GB (occurrence: GB)
  Receive Date: 20170811
  Receipt Date: 20170811
  Transmission Date: 20171127
  Serious: Yes (Other)
  Sender: FDA-Public Use
  Company Number: GB-PFIZER INC-2017346666

PATIENT
  Age: 35 Year
  Sex: Female
  Weight: 48 kg

DRUGS (2)
  1. CARBIMAZOLE [Concomitant]
     Active Substance: CARBIMAZOLE
     Dosage: 1 DF, 1X/DAY
     Dates: start: 20150210, end: 20170626
  2. CHAMPIX [Suspect]
     Active Substance: VARENICLINE TARTRATE
     Dosage: UNK
     Dates: start: 20170630

REACTIONS (2)
  - Depression [Recovering/Resolving]
  - Apathy [Unknown]
